FAERS Safety Report 6199594-8 (Version None)
Quarter: 2009Q2

REPORT INFORMATION
  Report Type: 
  Country: None (occurrence: None)
  Receive Date: 20090522
  Receipt Date: 20090519
  Transmission Date: 20091009
  Serious: Yes (Hospitalization)
  Sender: FDA-Public Use
  Company Number: B0575300A

PATIENT
  Sex: Female

DRUGS (1)
  1. LAPATINIB [Suspect]
     Dates: start: 20090427

REACTIONS (3)
  - DIARRHOEA [None]
  - PYREXIA [None]
  - TOXIC SKIN ERUPTION [None]
